FAERS Safety Report 9762924 (Version 1)
Quarter: 2013Q4

REPORT INFORMATION
  Report Type: Spontaneous
  Country: US (occurrence: US)
  Receive Date: 20131216
  Receipt Date: 20131216
  Transmission Date: 20140711
  Serious: No
  Sender: FDA-Public Use
  Company Number: US-BIOGENIDEC-2013BI102614

PATIENT
  Age: 46 Year
  Sex: Male

DRUGS (2)
  1. TECFIDERA [Suspect]
     Indication: MULTIPLE SCLEROSIS
     Route: 048
     Dates: start: 20130724
  2. SOLUMEDROL [Concomitant]
     Dates: start: 20131010, end: 20131014

REACTIONS (4)
  - Balance disorder [Unknown]
  - Gait disturbance [Unknown]
  - Coordination abnormal [Unknown]
  - Cognitive disorder [Unknown]
